FAERS Safety Report 12252324 (Version 1)
Quarter: 2016Q2

REPORT INFORMATION
  Report Type: Spontaneous
  Country: JP (occurrence: JP)
  Receive Date: 20160411
  Receipt Date: 20160411
  Transmission Date: 20160815
  Serious: Yes (Hospitalization, Other)
  Sender: FDA-Public Use
  Company Number: JP-PAR PHARMACEUTICAL COMPANIES-2016SCPR015321

PATIENT

DRUGS (4)
  1. GENERAL ANESTHESIA [Concomitant]
     Active Substance: UNSPECIFIED INGREDIENT
     Indication: GENERAL ANAESTHESIA
     Dosage: UNK UNK, UNKNOWN
     Route: 065
  2. ADRENALIN [Suspect]
     Active Substance: EPINEPHRINE
     Indication: RESUSCITATION
     Dosage: 1 MG, SINGLE
     Route: 042
  3. LEVOBUPIVACAINE [Concomitant]
     Active Substance: LEVOBUPIVACAINE
     Indication: LOCAL ANAESTHESIA
     Dosage: 225 MG, SINGLE, INJECTED INTO THE KNEE
     Route: 014
  4. LEVOBUPIVACAINE [Concomitant]
     Active Substance: LEVOBUPIVACAINE
     Dosage: 25 MG, SINGLE
     Route: 058

REACTIONS (4)
  - Pulmonary oedema [Unknown]
  - Product use issue [Unknown]
  - Renal failure [Unknown]
  - Condition aggravated [Unknown]
